FAERS Safety Report 25129032 (Version 1)
Quarter: 2025Q1

REPORT INFORMATION
  Report Type: Spontaneous
  Country: CA (occurrence: CA)
  Receive Date: 20250327
  Receipt Date: 20250327
  Transmission Date: 20250409
  Serious: Yes (Death, Other)
  Sender: TEVA
  Company Number: CA-TEVA-VS-3314852

PATIENT
  Age: 31 Year
  Sex: Male

DRUGS (6)
  1. CISPLATIN [Suspect]
     Active Substance: CISPLATIN
     Indication: Osteosarcoma
     Route: 065
  2. REGORAFENIB [Suspect]
     Active Substance: REGORAFENIB
     Indication: Rhabdomyosarcoma
     Route: 048
  3. ETOPOSIDE [Suspect]
     Active Substance: ETOPOSIDE
     Indication: Rhabdomyosarcoma
     Route: 065
  4. DOXORUBICIN HYDROCHLORIDE [Suspect]
     Active Substance: DOXORUBICIN HYDROCHLORIDE
     Indication: Osteosarcoma
     Route: 065
  5. ALECTINIB [Suspect]
     Active Substance: ALECTINIB
     Indication: Rhabdomyosarcoma
     Route: 048
  6. IFOSFAMIDE [Suspect]
     Active Substance: IFOSFAMIDE
     Indication: Rhabdomyosarcoma
     Route: 065

REACTIONS (5)
  - Metastases to salivary gland [Fatal]
  - Drug ineffective for unapproved indication [Fatal]
  - Metastases to lung [Fatal]
  - Malignant neoplasm progression [Fatal]
  - Osteosarcoma recurrent [Fatal]
